FAERS Safety Report 5337221-X (Version None)
Quarter: 2007Q2

REPORT INFORMATION
  Report Type: 
  Country: None (occurrence: None)
  Receive Date: 20070529
  Receipt Date: 20070524
  Transmission Date: 20071010
  Serious: Yes (Other)
  Sender: FDA-Public Use
  Company Number: A0652865A

PATIENT
  Age: 88 Year
  Sex: Female

DRUGS (8)
  1. AVANDIA [Suspect]
     Dosage: 2MG PER DAY
     Route: 048
     Dates: start: 20070201
  2. CARTIA XT [Concomitant]
  3. DIGOXIN [Concomitant]
  4. LISINOPRIL [Concomitant]
  5. FOSAMAX [Concomitant]
  6. BETOPTIC [Concomitant]
  7. ALPHAGAN [Concomitant]
  8. XALATAN [Concomitant]

REACTIONS (1)
  - VISUAL ACUITY REDUCED [None]
